FAERS Safety Report 24552010 (Version 1)
Quarter: 2024Q4

REPORT INFORMATION
  Report Type: Spontaneous
  Country: GB (occurrence: GB)
  Receive Date: 20241026
  Receipt Date: 20241026
  Transmission Date: 20250115
  Serious: Yes (Other)
  Sender: ABBVIE
  Company Number: None

PATIENT
  Age: 24 Year
  Sex: Female

DRUGS (1)
  1. CITALOPRAM HYDROBROMIDE [Suspect]
     Active Substance: CITALOPRAM HYDROBROMIDE
     Indication: Depression
     Dosage: 10MG ONCE DAILY
     Route: 065

REACTIONS (4)
  - Chest discomfort [Recovered/Resolved]
  - Anxiety [Recovered/Resolved]
  - Panic reaction [Recovered/Resolved]
  - Nausea [Recovered/Resolved]
